FAERS Safety Report 5078305-3 (Version None)
Quarter: 2006Q3

REPORT INFORMATION
  Report Type: 
  Country: None (occurrence: None)
  Receive Date: 20060811
  Receipt Date: 20060731
  Transmission Date: 20061208
  Serious: Yes (Hospitalization)
  Sender: FDA-Public Use
  Company Number: US-JNJFOC-20060505571

PATIENT
  Sex: Female
  Weight: 58.97 kg

DRUGS (29)
  1. DURAGESIC-100 [Suspect]
     Indication: PAIN
     Route: 062
  2. SODIUM PHOSPHATES [Concomitant]
     Indication: ENEMA ADMINISTRATION
     Dosage: USE ONE AS DIRECTED; MAY REPEAT ONCE
  3. FLAX SEED OIL [Concomitant]
  4. ULTRAM [Concomitant]
     Indication: DRUG USE FOR UNKNOWN INDICATION
     Route: 065
  5. ROXICODONE [Concomitant]
     Route: 065
  6. PLAVIX [Concomitant]
  7. LANOXIN [Concomitant]
  8. PREDNISONE [Concomitant]
  9. PRILOSEC [Concomitant]
  10. CLARINEX [Concomitant]
  11. LASIX [Concomitant]
     Dosage: 40 MG EVERY OTHER DAY
     Route: 048
  12. AMBIEN CR [Concomitant]
  13. COUMADIN [Concomitant]
  14. COUMADIN [Concomitant]
  15. LACTULOSE [Concomitant]
     Dosage: 10 GM/15 ML, 1 TBSP THREE TIMES DAILY
  16. DULCOLAX [Concomitant]
     Indication: CONSTIPATION
     Dosage: 10 MG ONCE; IF NO IMPROVEMENT MAY REPEAT ONCE
  17. SENOKOT [Concomitant]
     Indication: CONSTIPATION
     Route: 048
  18. MAGNESIUM CITRATE [Concomitant]
     Indication: CONSTIPATION
     Route: 048
  19. OXYCODONE HCL [Concomitant]
     Route: 048
  20. LEVOTHYROXINE SODIUM [Concomitant]
     Route: 048
  21. NITROGLYCERIN [Concomitant]
     Dosage: 12 HOURS ON AND 12 HOURS OFF
     Route: 061
  22. TOPROL-XL [Concomitant]
     Route: 048
  23. VALIUM [Concomitant]
     Route: 048
  24. AMITRIPTYLINE HCL [Concomitant]
     Dosage: TAKE AT BEDTIME
     Route: 048
  25. FLOVENT [Concomitant]
     Dosage: 1 PUFF TWICE DAILY
     Route: 055
  26. THERAGRAN-M [Concomitant]
  27. SYSTANE [Concomitant]
  28. RISPERDAL [Concomitant]
     Indication: DRUG USE FOR UNKNOWN INDICATION
  29. LEXAPRO [Concomitant]
     Indication: MOOD SWINGS
     Route: 048

REACTIONS (10)
  - ABDOMINAL PAIN UPPER [None]
  - CONSTIPATION [None]
  - CORONARY ARTERY DISEASE [None]
  - DEEP VEIN THROMBOSIS [None]
  - DIZZINESS [None]
  - ERYTHEMA [None]
  - PAIN IN EXTREMITY [None]
  - PARONYCHIA [None]
  - TINNITUS [None]
  - WEIGHT DECREASED [None]
